FAERS Safety Report 21603970 (Version 1)
Quarter: 2022Q4

REPORT INFORMATION
  Report Type: Spontaneous
  Country: US (occurrence: US)
  Receive Date: 20221116
  Receipt Date: 20221116
  Transmission Date: 20230113
  Serious: No
  Sender: FDA-Public Use
  Company Number: US-OptiNose US, Inc-2021OPT000261

PATIENT
  Sex: Female

DRUGS (1)
  1. XHANCE [Suspect]
     Active Substance: FLUTICASONE PROPIONATE
     Indication: Sinus disorder
     Route: 045
     Dates: start: 20210712, end: 20210915

REACTIONS (5)
  - Upper-airway cough syndrome [Recovered/Resolved]
  - Stomatitis [Recovered/Resolved]
  - Vision blurred [Recovered/Resolved]
  - Chest discomfort [Recovered/Resolved]
  - Product use in unapproved indication [Unknown]
